FAERS Safety Report 12511284 (Version 2)
Quarter: 2016Q3

REPORT INFORMATION
  Report Type: Spontaneous
  Country: FR (occurrence: FR)
  Receive Date: 20160629
  Receipt Date: 20160706
  Transmission Date: 20161109
  Serious: Yes (Other)
  Sender: FDA-Public Use
  Company Number: FR-ASTRAZENECA-2016SE68874

PATIENT
  Age: 24744 Day
  Sex: Female

DRUGS (13)
  1. INEXIUM [Suspect]
     Active Substance: ESOMEPRAZOLE
     Route: 048
  2. ZELITREX [Suspect]
     Active Substance: VALACYCLOVIR HYDROCHLORIDE
     Route: 048
     Dates: start: 20160413
  3. ENDOXAN [Suspect]
     Active Substance: CYCLOPHOSPHAMIDE
     Dosage: 2900 MG
     Route: 042
     Dates: start: 20160422, end: 20160423
  4. THIOTEPA. [Suspect]
     Active Substance: THIOTEPA
     Route: 042
     Dates: start: 20160413, end: 20160417
  5. ARACYTINE [Concomitant]
     Active Substance: CYTARABINE
     Indication: ACUTE MYELOID LEUKAEMIA
     Dosage: WITH RESCUE CHEMOTHERAPY AS ARACYTINE HIGH DOSE
     Route: 065
     Dates: start: 201512
  6. BACTRIM [Suspect]
     Active Substance: SULFAMETHOXAZOLE\TRIMETHOPRIM
     Route: 048
  7. CLAMOXYL [Suspect]
     Active Substance: AMOXICILLIN\CLAVULANIC ACID
     Route: 048
     Dates: start: 201605
  8. TRIFLUCAN [Suspect]
     Active Substance: FLUCONAZOLE
     Route: 048
     Dates: start: 20160420
  9. FLUDARABINE [Suspect]
     Active Substance: FLUDARABINE PHOSPHATE
     Route: 048
     Dates: start: 20160413
  10. MYCOPHENOLATE MOFETIL. [Suspect]
     Active Substance: MYCOPHENOLATE MOFETIL
     Route: 048
     Dates: start: 20160424
  11. NEORAL [Suspect]
     Active Substance: CYCLOSPORINE
     Dosage: 3.0MG/KG UNKNOWN
     Route: 048
     Dates: start: 20160424
  12. ARACYTINE [Concomitant]
     Active Substance: CYTARABINE
     Indication: ACUTE MYELOID LEUKAEMIA
     Route: 065
  13. BACTRIM [Suspect]
     Active Substance: SULFAMETHOXAZOLE\TRIMETHOPRIM
     Dosage: 2 TABLETS
     Route: 048
     Dates: start: 201604, end: 20160417

REACTIONS (7)
  - Sepsis [Unknown]
  - Pyrexia [Recovered/Resolved]
  - Graft complication [Unknown]
  - Visual field defect [Recovered/Resolved]
  - Retinal haemorrhage [Unknown]
  - Rash [Recovered/Resolved]
  - Cerebral haemorrhage [Unknown]

NARRATIVE: CASE EVENT DATE: 20160314
